FAERS Safety Report 6234008-0 (Version None)
Quarter: 2009Q2

REPORT INFORMATION
  Report Type: 
  Country: None (occurrence: None)
  Receive Date: 20090616
  Receipt Date: 20090616
  Transmission Date: 20091009
  Serious: Yes (Death)
  Sender: FDA-Public Use
  Company Number: None

PATIENT
  Age: 19 Year
  Sex: Male
  Weight: 54.4316 kg

DRUGS (2)
  1. STRATTERA [Suspect]
     Indication: ATTENTION DEFICIT/HYPERACTIVITY DISORDER
     Dosage: 40 MEG TWO A DAY
     Dates: start: 20090501, end: 20090526
  2. STRATTERA [Suspect]
     Indication: DEPRESSION
     Dosage: 40 MEG TWO A DAY
     Dates: start: 20090501, end: 20090526

REACTIONS (5)
  - FEELING ABNORMAL [None]
  - GUN SHOT WOUND [None]
  - INTENTIONAL SELF-INJURY [None]
  - MOOD ALTERED [None]
  - THEFT [None]
